FAERS Safety Report 5399854-4 (Version None)
Quarter: 2007Q3

REPORT INFORMATION
  Report Type: 
  Country: None (occurrence: None)
  Receive Date: 20070730
  Receipt Date: 20070724
  Transmission Date: 20080115
  Serious: Yes (Hospitalization)
  Sender: FDA-Public Use
  Company Number: PHEH2007US07785

PATIENT
  Age: 58 Year
  Sex: Female
  Weight: 50.793 kg

DRUGS (9)
  1. SYNTHROID [Concomitant]
     Indication: HYPOTHYROIDISM
     Dosage: 0.05 MG, QD
     Route: 048
     Dates: start: 20061024
  2. ZELNORM [Suspect]
     Indication: IRRITABLE BOWEL SYNDROME
     Dosage: 6 MG, BID
     Route: 048
     Dates: start: 20061024
  3. ATIVAN [Concomitant]
     Dosage: 0.5 MG, Q12H
     Route: 048
  4. CALCIUM CHLORIDE [Concomitant]
     Dosage: 500 MG, BID
  5. LUMIGAN [Concomitant]
     Dosage: UNK, QD
  6. XALATAN [Concomitant]
  7. MIRALAX [Concomitant]
     Dosage: 15 ML, QD
     Route: 048
  8. SEROQUEL [Concomitant]
     Dosage: 25 MG, QHS
  9. FORTEO [Concomitant]
     Dosage: 750 MG, QD
     Route: 058
     Dates: start: 20061024

REACTIONS (19)
  - BLOOD CREATINE PHOSPHOKINASE INCREASED [None]
  - BLOOD PRESSURE DECREASED [None]
  - CATHETERISATION CARDIAC NORMAL [None]
  - CHEST DISCOMFORT [None]
  - CHEST PAIN [None]
  - DYSPNOEA EXERTIONAL [None]
  - ECHOCARDIOGRAM ABNORMAL [None]
  - EJECTION FRACTION DECREASED [None]
  - ELECTROCARDIOGRAM ABNORMAL [None]
  - ELECTROCARDIOGRAM T WAVE INVERSION [None]
  - FATIGUE [None]
  - LEFT VENTRICULAR FAILURE [None]
  - MITRAL VALVE INCOMPETENCE [None]
  - MITRAL VALVE PROLAPSE [None]
  - MYOCARDIAL INFARCTION [None]
  - STRESS AT WORK [None]
  - TROPONIN I INCREASED [None]
  - VENTRICULAR DYSFUNCTION [None]
  - VENTRICULAR HYPOKINESIA [None]
